FAERS Safety Report 9548508 (Version 1)
Quarter: 2013Q3

REPORT INFORMATION
  Report Type: Spontaneous
  Country: US (occurrence: None)
  Receive Date: 20130923
  Receipt Date: 20130923
  Transmission Date: 20140515
  Serious: Yes (Other)
  Sender: FDA-Public Use
  Company Number: None

PATIENT
  Age: 52 Year
  Sex: Female
  Weight: 70.31 kg

DRUGS (1)
  1. BACTRIM DS 800 MG/ 160 MG [Suspect]
     Indication: CYST RUPTURE
     Dosage: 1 PILL TWICE DAILY TAKEN BY MOUTH
     Dates: start: 20130905, end: 20130913

REACTIONS (2)
  - Abdominal pain upper [None]
  - Drug hypersensitivity [None]
